FAERS Safety Report 5155660-7 (Version None)
Quarter: 2006Q4

REPORT INFORMATION
  Report Type: 
  Country: None (occurrence: None)
  Receive Date: 20061114
  Receipt Date: 20061024
  Transmission Date: 20070319
  Serious: Yes (Death)
  Sender: FDA-Public Use
  Company Number: PAR_0990-2006

PATIENT
  Age: 74 Year
  Sex: 0

DRUGS (2)
  1. GLIPIZIDE [Suspect]
     Dosage: DF PO
     Route: 048
  2. METFORMIN HCL [Suspect]
     Dosage: DF PO
     Route: 048

REACTIONS (1)
  - DRUG TOXICITY [None]
